FAERS Safety Report 23642504 (Version 2)
Quarter: 2024Q1

REPORT INFORMATION
  Report Type: Spontaneous
  Country: BR (occurrence: BR)
  Receive Date: 20240318
  Receipt Date: 20240318
  Transmission Date: 20240409
  Serious: No
  Sender: FDA-Public Use
  Company Number: BR-PFIZER INC-PV202400025221

PATIENT
  Age: 6 Year
  Sex: Male

DRUGS (1)
  1. SOMATROGON [Suspect]
     Active Substance: SOMATROGON
     Dosage: 13.5 MG
     Dates: start: 20240220

REACTIONS (4)
  - Pyrexia [Recovered/Resolved]
  - Injection site pain [Unknown]
  - Device dispensing error [Unknown]
  - Incorrect dose administered by device [Unknown]

NARRATIVE: CASE EVENT DATE: 20240220
